FAERS Safety Report 17015848 (Version 1)
Quarter: 2019Q4

REPORT INFORMATION
  Report Type: Spontaneous
  Country: US (occurrence: US)
  Receive Date: 20191111
  Receipt Date: 20191111
  Transmission Date: 20200122
  Serious: No
  Sender: FDA-Public Use
  Company Number: US-BEH-2019109119

PATIENT
  Sex: Female

DRUGS (1)
  1. PRIVIGEN [Suspect]
     Active Substance: HUMAN IMMUNOGLOBULIN G
     Indication: CHOREA
     Dosage: 5 GRAM, QMT
     Route: 042
     Dates: start: 20190521

REACTIONS (3)
  - Therapy cessation [Unknown]
  - No adverse event [Unknown]
  - Product use in unapproved indication [Unknown]
